FAERS Safety Report 19051915 (Version 1)
Quarter: 2021Q1

REPORT INFORMATION
  Report Type: Spontaneous
  Country: US (occurrence: US)
  Receive Date: 20210324
  Receipt Date: 20210324
  Transmission Date: 20210420
  Serious: No
  Sender: FDA-Public Use
  Company Number: US-TARO-2020TAR00586

PATIENT
  Age: 12 Year
  Sex: Female
  Weight: 52.15 kg

DRUGS (3)
  1. FOCALIN [Concomitant]
     Active Substance: DEXMETHYLPHENIDATE HYDROCHLORIDE
     Indication: PRODUCT USED FOR UNKNOWN INDICATION
     Dosage: UNK
     Route: 065
  2. CLONIDINE. [Concomitant]
     Active Substance: CLONIDINE
     Indication: PRODUCT USED FOR UNKNOWN INDICATION
     Dosage: UNK
     Route: 065
  3. LAMOTRIGINE TABLETS 100 MG [Suspect]
     Active Substance: LAMOTRIGINE
     Indication: MOOD ALTERED
     Dosage: 100 MG, BID
     Route: 048
     Dates: start: 20200228

REACTIONS (1)
  - Behaviour disorder [Recovered/Resolved]

NARRATIVE: CASE EVENT DATE: 20200228
